FAERS Safety Report 8916450 (Version 2)
Quarter: 2013Q1

REPORT INFORMATION
  Report Type: Spontaneous
  Country: US (occurrence: US)
  Receive Date: 20121120
  Receipt Date: 20130314
  Transmission Date: 20140127
  Serious: Yes (Other)
  Sender: FDA-Public Use
  Company Number: US-BAYER-2012-120024

PATIENT
  Age: 28 Year
  Sex: Female
  Weight: 81.63 kg

DRUGS (3)
  1. YASMIN [Suspect]
     Dosage: UNK
     Dates: start: 2005, end: 2008
  2. ZESTRIL [Concomitant]
     Indication: HYPERTENSION
     Dosage: 10 MG,DAILY
     Dates: start: 2008
  3. LISINOPRIL [Concomitant]

REACTIONS (8)
  - Cholecystitis chronic [None]
  - Cholelithiasis [None]
  - Injury [None]
  - General physical health deterioration [None]
  - Pain [None]
  - Emotional distress [None]
  - Anxiety [None]
  - Pain [None]
